FAERS Safety Report 21473217 (Version 3)
Quarter: 2023Q1

REPORT INFORMATION
  Report Type: Report from Study
  Country: US (occurrence: US)
  Receive Date: 20221018
  Receipt Date: 20230119
  Transmission Date: 20230418
  Serious: No
  Sender: FDA-Public Use
  Company Number: US-ABBVIE-4139388

PATIENT
  Sex: Female

DRUGS (2)
  1. IMBRUVICA [Suspect]
     Active Substance: IBRUTINIB
     Indication: Non-Hodgkin^s lymphoma
     Dosage: LAST ADMINISTRATION DATE: 2022
     Route: 048
     Dates: start: 20220829
  2. IMBRUVICA [Suspect]
     Active Substance: IBRUTINIB
     Indication: Non-Hodgkin^s lymphoma
     Route: 048

REACTIONS (5)
  - Diarrhoea [Unknown]
  - Chills [Unknown]
  - Bronchitis [Unknown]
  - Unevaluable event [Unknown]
  - Hypoaesthesia [Unknown]

NARRATIVE: CASE EVENT DATE: 20220101
